FAERS Safety Report 24641209 (Version 1)
Quarter: 2024Q4

REPORT INFORMATION
  Report Type: Spontaneous
  Country: FR (occurrence: FR)
  Receive Date: 20241120
  Receipt Date: 20241120
  Transmission Date: 20250115
  Serious: Yes (Hospitalization, Disabling, Other)
  Sender: MERCK
  Company Number: None

PATIENT
  Age: 67 Year
  Sex: Male
  Weight: 84 kg

DRUGS (1)
  1. KEYTRUDA [Suspect]
     Active Substance: PEMBROLIZUMAB
     Indication: Lung adenocarcinoma
     Dosage: UNK
     Route: 042

REACTIONS (2)
  - Keratitis [Recovered/Resolved with Sequelae]
  - Corneal perforation [Recovered/Resolved with Sequelae]

NARRATIVE: CASE EVENT DATE: 20240801
